FAERS Safety Report 9312909 (Version 2)
Quarter: 2013Q3

REPORT INFORMATION
  Report Type: Report from Study
  Country: US (occurrence: US)
  Receive Date: 20130528
  Receipt Date: 20130828
  Transmission Date: 20140515
  Serious: No
  Sender: FDA-Public Use
  Company Number: US-ABBOTT-13P-163-1069035-00

PATIENT
  Sex: Male
  Weight: 118.04 kg

DRUGS (11)
  1. FLEXERIL [Concomitant]
     Indication: MUSCLE SPASMS
  2. LOSARTAN HCT [Concomitant]
     Indication: HYPERTENSION
  3. SIMVASTATIN [Concomitant]
     Indication: BLOOD CHOLESTEROL INCREASED
  4. METFORMIN [Concomitant]
     Indication: DIABETES MELLITUS
  5. TYLENOL [Concomitant]
     Indication: PAIN
  6. LEVOMIRE [Concomitant]
     Indication: DIABETES MELLITUS
  7. ANDROGEL [Suspect]
     Indication: BLOOD TESTOSTERONE DECREASED
     Dates: start: 201302
  8. BENGAY [Interacting]
     Indication: PRODUCT USED FOR UNKNOWN INDICATION
  9. SALONPAS [Suspect]
     Indication: PAIN
     Dates: end: 201303
  10. ARTHROTEC [Concomitant]
     Indication: PAIN
  11. GABAPENTIN [Concomitant]
     Indication: NEUROPATHY PERIPHERAL

REACTIONS (2)
  - Application site pain [Recovered/Resolved]
  - Drug interaction [Unknown]
